FAERS Safety Report 25653079 (Version 1)
Quarter: 2025Q3

REPORT INFORMATION
  Report Type: Spontaneous
  Country: US (occurrence: US)
  Receive Date: 20250807
  Receipt Date: 20250807
  Transmission Date: 20251020
  Serious: Yes (Other)
  Sender: SANOFI AVENTIS
  Company Number: US-SA-2025SA228712

PATIENT
  Sex: Male
  Weight: 81.633 kg

DRUGS (1)
  1. KEVZARA [Suspect]
     Active Substance: SARILUMAB
     Indication: Polymyalgia rheumatica
     Dosage: 200 MG, QOW
     Route: 058

REACTIONS (3)
  - Polymyalgia rheumatica [Not Recovered/Not Resolved]
  - Myalgia [Not Recovered/Not Resolved]
  - Limb discomfort [Not Recovered/Not Resolved]
